FAERS Safety Report 9564927 (Version 3)
Quarter: 2014Q1

REPORT INFORMATION
  Report Type: Report from Study
  Country: DE (occurrence: DE)
  Receive Date: 20130930
  Receipt Date: 20140204
  Transmission Date: 20141002
  Serious: Yes (Hospitalization)
  Sender: FDA-Public Use
  Company Number: PHHY2013DE107783

PATIENT
  Sex: Female

DRUGS (8)
  1. AMN107 [Suspect]
     Indication: CHRONIC MYELOID LEUKAEMIA
     Dosage: 600 MG, DAILY
     Route: 048
     Dates: start: 20120514
  2. AMN107 [Suspect]
     Dosage: 300 MG, DAILY
     Route: 048
     Dates: start: 20120701, end: 20120731
  3. AMN107 [Suspect]
     Dosage: 450 MG, DAILY
     Route: 048
     Dates: start: 20120801, end: 20120831
  4. AMN107 [Suspect]
     Dosage: 600 MG, DAILY
     Route: 048
     Dates: start: 20120901, end: 20121129
  5. AMN107 [Suspect]
     Dosage: 450 MG, DAILY
     Route: 048
     Dates: start: 20121129, end: 20130228
  6. AMN107 [Suspect]
     Dosage: 600 MG, DAILY
     Route: 048
     Dates: start: 20130301, end: 20130722
  7. AMN107 [Suspect]
     Dosage: 450 MG, DAILY
     Route: 048
     Dates: start: 20130723
  8. CITALOPRAM [Concomitant]
     Indication: DEPRESSION
     Dosage: 20 MG, DAILY
     Route: 048

REACTIONS (3)
  - Burning sensation [Recovered/Resolved]
  - Hypersensitivity [Recovered/Resolved]
  - Malaise [Recovered/Resolved]
